FAERS Safety Report 21722182 (Version 2)
Quarter: 2023Q2

REPORT INFORMATION
  Report Type: Report from Study
  Country: IT (occurrence: IT)
  Receive Date: 20221213
  Receipt Date: 20230622
  Transmission Date: 20230721
  Serious: Yes (Death, Other)
  Sender: FDA-Public Use
  Company Number: None

PATIENT
  Age: 86 Year
  Sex: Female

DRUGS (4)
  1. METHOTREXATE [Suspect]
     Active Substance: METHOTREXATE
     Indication: Rheumatoid arthritis
     Dosage: EVERY DAY
     Dates: start: 20221104, end: 20221112
  2. CLINDAMYCIN PHOSPHATE [Suspect]
     Active Substance: CLINDAMYCIN PHOSPHATE
     Indication: Lung abscess
     Dates: start: 20221103, end: 20221111
  3. PIPERACILLIN SODIUM\TAZOBACTAM SODIUM [Suspect]
     Active Substance: PIPERACILLIN SODIUM\TAZOBACTAM SODIUM
     Indication: Lung abscess
     Dates: start: 20221108, end: 20221112
  4. AMOXICILLIN\CLAVULANATE POTASSIUM [Suspect]
     Active Substance: AMOXICILLIN\CLAVULANATE POTASSIUM
     Indication: Lung abscess
     Dosage: CLINDAMYCIN IV (SUSPENDED LATER 11/11/22)
     Dates: start: 20221103, end: 20221108

REACTIONS (5)
  - Hypertransaminasaemia [Fatal]
  - Skin reaction [Fatal]
  - Mucosal inflammation [Fatal]
  - Leukopenia [Fatal]
  - Medication error [Fatal]

NARRATIVE: CASE EVENT DATE: 20221110
